FAERS Safety Report 9797514 (Version 3)
Quarter: 2015Q3

REPORT INFORMATION
  Report Type: Report from Study
  Country: MX (occurrence: MX)
  Receive Date: 20140106
  Receipt Date: 20150706
  Transmission Date: 20151125
  Serious: Yes (Disabling, Other)
  Sender: FDA-Public Use
  Company Number: PHHY2013MX153026

PATIENT
  Age: 66 Year
  Sex: Male

DRUGS (10)
  1. VENLAFAXINE [Concomitant]
     Active Substance: VENLAFAXINE HYDROCHLORIDE
     Indication: DEPRESSION
     Dosage: 1 OT, QD
     Route: 065
     Dates: start: 2011
  2. STALEVO [Suspect]
     Active Substance: CARBIDOPA\ENTACAPONE\LEVODOPA
     Indication: DYSTONIA
     Dosage: 1 DF (125/31.25/200 MG), UNK
     Route: 048
  3. SIFROL [Concomitant]
     Active Substance: PRAMIPEXOLE
     Indication: PRODUCT USED FOR UNKNOWN INDICATION
     Dosage: 1 (UNIT UNSPECIFIED), QD
     Route: 065
  4. ASPIRINA [Concomitant]
     Active Substance: ASPIRIN
     Indication: PROPHYLAXIS
     Dosage: 1 OT, QD
     Route: 065
     Dates: start: 2008
  5. LEVODOPA [Concomitant]
     Active Substance: LEVODOPA
     Indication: PRODUCT USED FOR UNKNOWN INDICATION
     Route: 065
  6. STALEVO [Suspect]
     Active Substance: CARBIDOPA\ENTACAPONE\LEVODOPA
     Indication: PARKINSON^S DISEASE
     Dosage: 1 DF (200/50/200 MG), EVERY 4 HOURS
     Route: 048
     Dates: start: 20111214
  7. STALEVO [Suspect]
     Active Substance: CARBIDOPA\ENTACAPONE\LEVODOPA
     Dosage: 1 DF (200/50/200 MG), EVERY 4 HOURS
     Route: 048
  8. MICARDIS [Concomitant]
     Active Substance: TELMISARTAN
     Indication: HYPERTENSION
     Dosage: 1 OT, QD
     Route: 065
     Dates: start: 2008
  9. CARBIDOPA. [Concomitant]
     Active Substance: CARBIDOPA
     Indication: PRODUCT USED FOR UNKNOWN INDICATION
     Route: 065
  10. TREXOL [Concomitant]
     Indication: PRODUCT USED FOR UNKNOWN INDICATION
     Dosage: 3 DF (0.5 MG), TID
     Route: 065

REACTIONS (5)
  - Nuchal rigidity [Not Recovered/Not Resolved]
  - Dysphagia [Not Recovered/Not Resolved]
  - Depressed mood [Not Recovered/Not Resolved]
  - Panic disorder [Not Recovered/Not Resolved]
  - Aphasia [Not Recovered/Not Resolved]

NARRATIVE: CASE EVENT DATE: 20130911
